FAERS Safety Report 7629417-9 (Version None)
Quarter: 2011Q3

REPORT INFORMATION
  Report Type: 
  Country: None (occurrence: None)
  Receive Date: 20110722
  Receipt Date: 20110718
  Transmission Date: 20111222
  Serious: Yes (Death, Life-Threatening)
  Sender: FDA-Public Use
  Company Number: GB-PFIZER INC-2011104083

PATIENT
  Age: 79 Year
  Sex: Male
  Weight: 84 kg

DRUGS (8)
  1. TESTOSTERONE [Concomitant]
     Indication: BLOOD FOLLICLE STIMULATING HORMONE DECREASED
  2. TESTOSTERONE [Concomitant]
     Indication: BLOOD LUTEINISING HORMONE DECREASED
     Dosage: 50 MG, UNIT DOSE
     Dates: start: 20080227
  3. QUETIAPINE [Concomitant]
     Indication: MANIA
     Dosage: 25 MG, UNIT DOSE
     Dates: start: 20071026
  4. HYDROCORTISONE [Concomitant]
     Indication: BLOOD CORTICOTROPHIN DECREASED
     Dosage: 10 MG, 2X/DAY
     Dates: start: 20031203
  5. QUETIAPINE [Concomitant]
     Dosage: 25 MG, UNIT DOSE
     Dates: start: 20071115
  6. TESTOSTERONE [Concomitant]
     Indication: HYPOGONADISM MALE
  7. SOMATROPIN RDNA [Suspect]
     Indication: HYPOPITUITARISM
     Dosage: 0.4 MG/DAY (7 INJECTIONS/WEEK)
     Dates: start: 20040901
  8. CABERGOLINE [Concomitant]
     Indication: PITUITARY TUMOUR
     Dosage: UNK
     Dates: start: 20071026

REACTIONS (1)
  - BLADDER CANCER [None]
